FAERS Safety Report 25989606 (Version 1)
Quarter: 2025Q4

REPORT INFORMATION
  Report Type: Spontaneous
  Country: US (occurrence: None)
  Receive Date: 20251031
  Receipt Date: 20251031
  Transmission Date: 20260118
  Serious: Yes (Hospitalization, Disabling, Other)
  Sender: FDA-CTU
  Company Number: None

PATIENT
  Age: 56 Year
  Sex: Female
  Weight: 97.65 kg

DRUGS (22)
  1. RECLAST [Suspect]
     Active Substance: ZOLEDRONIC ACID
     Indication: Osteitis deformans
     Dosage: OTHER QUANTITY : 5 IV INFUSION;?OTHER FREQUENCY : 1TIME YR;?OTHER ROUTE : IV;?
     Route: 050
  2. SPIRONOLACTONE [Concomitant]
     Active Substance: SPIRONOLACTONE
  3. GLIPIZIDE [Concomitant]
     Active Substance: GLIPIZIDE
  4. LANTUS SOLOSTAR [Concomitant]
     Active Substance: INSULIN GLARGINE
  5. LUBIPROSTONE [Concomitant]
     Active Substance: LUBIPROSTONE
  6. ESOMEPRAZOLE [Concomitant]
     Active Substance: ESOMEPRAZOLE
  7. PRAMIPEXOLE [Concomitant]
     Active Substance: PRAMIPEXOLE
  8. ergocalciferol capsule [Concomitant]
  9. ATORVASTATIN [Concomitant]
     Active Substance: ATORVASTATIN
  10. LEVOTHYROXINE [Concomitant]
     Active Substance: LEVOTHYROXINE
  11. QUETIAPINE [Concomitant]
     Active Substance: QUETIAPINE
  12. FLUOXETINE [Concomitant]
     Active Substance: FLUOXETINE HYDROCHLORIDE
  13. ASPIRIN [Concomitant]
     Active Substance: ASPIRIN
  14. MELOXICAM [Concomitant]
     Active Substance: MELOXICAM
  15. METFORMIN [Concomitant]
     Active Substance: METFORMIN HYDROCHLORIDE
  16. CETIRIZINE [Concomitant]
     Active Substance: CETIRIZINE HYDROCHLORIDE
  17. LAMOTRIGINE [Concomitant]
     Active Substance: LAMOTRIGINE
  18. GABAPENTIN [Concomitant]
     Active Substance: GABAPENTIN
  19. FERROUS SULFATE [Concomitant]
     Active Substance: FERROUS SULFATE
  20. ZALEPLON [Concomitant]
     Active Substance: ZALEPLON
  21. VITAMIN B12 [Concomitant]
     Active Substance: CYANOCOBALAMIN
  22. CALCIUM [Concomitant]
     Active Substance: CALCIUM

REACTIONS (7)
  - Bone pain [None]
  - Pneumonia [None]
  - Palpitations [None]
  - Glaucoma [None]
  - Blood pressure fluctuation [None]
  - Asthma [None]
  - Blood calcium decreased [None]

NARRATIVE: CASE EVENT DATE: 20250717
